FAERS Safety Report 8385159-6 (Version None)
Quarter: 2012Q2

REPORT INFORMATION
  Report Type: 
  Country: None (occurrence: None)
  Receive Date: 20120525
  Receipt Date: 20120514
  Transmission Date: 20120825
  Serious: Yes (Death, Other)
  Sender: FDA-Public Use
  Company Number: BR-RANBAXY-2012R5-55629

PATIENT

DRUGS (2)
  1. PREDNISOLONE [Concomitant]
     Indication: COUGH
     Dosage: 5 ML, BID
     Route: 065
     Dates: start: 20120403, end: 20120405
  2. AMOXICILLIN AND CLAVULANATE POTASSIUM [Suspect]
     Indication: INCREASED UPPER AIRWAY SECRETION
     Dosage: 5 ML, BID
     Route: 048
     Dates: start: 20120403, end: 20120409

REACTIONS (6)
  - MEDICATION ERROR [None]
  - PRODUCT COLOUR ISSUE [None]
  - INCREASED BRONCHIAL SECRETION [None]
  - EAR PAIN [None]
  - DRUG INEFFECTIVE [None]
  - EAR INFECTION [None]
